FAERS Safety Report 10221381 (Version 1)
Quarter: 2014Q2

REPORT INFORMATION
  Report Type: Spontaneous
  Country: JP (occurrence: JP)
  Receive Date: 20140606
  Receipt Date: 20140606
  Transmission Date: 20141212
  Serious: Yes (Other)
  Sender: FDA-Public Use
  Company Number: JP-PFIZER INC-2014154089

PATIENT
  Age: 88 Year
  Sex: Female

DRUGS (1)
  1. CELECOX [Suspect]
     Dosage: 200 MG, 1X/DAY
     Route: 048

REACTIONS (1)
  - Delirium [Unknown]
